FAERS Safety Report 8136330-X (Version None)
Quarter: 2012Q1

REPORT INFORMATION
  Report Type: 
  Country: None (occurrence: None)
  Receive Date: 20120214
  Receipt Date: 20120209
  Transmission Date: 20120608
  Serious: Yes (Other)
  Sender: FDA-Public Use
  Company Number: US-MEDIMMUNE-MEDI-0014826

PATIENT
  Sex: Male
  Weight: 9.08 kg

DRUGS (2)
  1. SYNAGIS [Suspect]
     Route: 030
     Dates: start: 20111201
  2. POLYVISOL [Concomitant]

REACTIONS (3)
  - TACHYCARDIA [None]
  - DRY SKIN [None]
  - UNRESPONSIVE TO STIMULI [None]
